FAERS Safety Report 26130716 (Version 1)
Quarter: 2025Q4

REPORT INFORMATION
  Report Type: Spontaneous
  Country: EU (occurrence: EU)
  Receive Date: 20251208
  Receipt Date: 20251208
  Transmission Date: 20260118
  Serious: Yes (Other)
  Sender: ANI
  Company Number: EU-ANIPHARMA-035487

PATIENT
  Age: 34 Year
  Sex: Female

DRUGS (1)
  1. CANDESARTAN CILEXETIL [Suspect]
     Active Substance: CANDESARTAN CILEXETIL
     Indication: Product used for unknown indication
     Dates: start: 202510

REACTIONS (9)
  - Loss of consciousness [Unknown]
  - Syncope [Unknown]
  - Extrasystoles [Unknown]
  - Derealisation [Unknown]
  - Chest discomfort [Unknown]
  - Fatigue [Unknown]
  - Confusional state [Unknown]
  - Heart rate increased [Unknown]
  - Palpitations [Unknown]

NARRATIVE: CASE EVENT DATE: 20250101
